FAERS Safety Report 9370243 (Version 3)
Quarter: 2013Q3

REPORT INFORMATION
  Report Type: Spontaneous
  Country: US (occurrence: US)
  Receive Date: 20130626
  Receipt Date: 20130814
  Transmission Date: 20140515
  Serious: No
  Sender: FDA-Public Use
  Company Number: US-PFIZER INC-2013187545

PATIENT
  Sex: Female

DRUGS (2)
  1. ADVIL PM [Suspect]
     Indication: INSOMNIA
     Dosage: UNK
  2. TYLENOL PM [Suspect]
     Indication: INSOMNIA
     Dosage: UNK

REACTIONS (5)
  - Off label use [Unknown]
  - Drug ineffective [Unknown]
  - Dry mouth [Unknown]
  - Fatigue [Unknown]
  - Middle insomnia [Unknown]
